FAERS Safety Report 7308539-6 (Version None)
Quarter: 2011Q1

REPORT INFORMATION
  Report Type: 
  Country: None (occurrence: None)
  Receive Date: 20110211
  Receipt Date: 20110127
  Transmission Date: 20110831
  Serious: Yes (Other)
  Sender: FDA-Public Use
  Company Number: DSJ-2011-01900

PATIENT
  Age: 52 Year
  Sex: Male

DRUGS (2)
  1. BENICAR [Suspect]
     Indication: HYPERTENSION
     Dosage: 20 MG (20 MG,1 IN 1 D),PER ORAL ; 40 MG (20 MG,2 IN 1 D),PER ORAL
     Route: 048
     Dates: start: 20090801, end: 20110111
  2. BENICAR [Suspect]
     Indication: HYPERTENSION
     Dosage: 20 MG (20 MG,1 IN 1 D),PER ORAL ; 40 MG (20 MG,2 IN 1 D),PER ORAL
     Route: 048
     Dates: start: 20110112

REACTIONS (1)
  - TRANSIENT ISCHAEMIC ATTACK [None]
